FAERS Safety Report 11595239 (Version 25)
Quarter: 2017Q2

REPORT INFORMATION
  Report Type: Report from Study
  Country: CA (occurrence: CA)
  Receive Date: 20151006
  Receipt Date: 20170630
  Transmission Date: 20170829
  Serious: Yes (Other)
  Sender: FDA-Public Use
  Company Number: CA-ROCHE-1466793

PATIENT
  Age: 62 Year
  Sex: Female
  Weight: 92 kg

DRUGS (10)
  1. NAPROXEN. [Concomitant]
     Active Substance: NAPROXEN
  2. ACTEMRA [Suspect]
     Active Substance: TOCILIZUMAB
     Indication: RHEUMATOID ARTHRITIS
     Route: 042
     Dates: start: 20140730, end: 20170612
  3. PREVACID [Concomitant]
     Active Substance: LANSOPRAZOLE
  4. TRAMACET [Concomitant]
     Active Substance: ACETAMINOPHEN\TRAMADOL
  5. ACTEMRA [Suspect]
     Active Substance: TOCILIZUMAB
     Route: 042
     Dates: start: 20160209
  6. PREDNISONE. [Concomitant]
     Active Substance: PREDNISONE
  7. ACTEMRA [Suspect]
     Active Substance: TOCILIZUMAB
     Route: 042
  8. ATENOLOL. [Concomitant]
     Active Substance: ATENOLOL
     Indication: SUPRAVENTRICULAR TACHYCARDIA
  9. CURCUMIN [Concomitant]
     Active Substance: CURCUMIN
  10. OMEGA FISH OIL [Concomitant]
     Active Substance: FISH OIL\OMEGA-3 FATTY ACIDS

REACTIONS (28)
  - Blood creatinine increased [Unknown]
  - Blood pressure increased [Unknown]
  - Muscle spasms [Not Recovered/Not Resolved]
  - Viral upper respiratory tract infection [Recovering/Resolving]
  - Animal scratch [Not Recovered/Not Resolved]
  - Abdominal pain [Not Recovered/Not Resolved]
  - Serum ferritin decreased [Unknown]
  - Tooth disorder [Unknown]
  - Scratch [Not Recovered/Not Resolved]
  - Lower respiratory tract infection [Not Recovered/Not Resolved]
  - Fungal infection [Unknown]
  - Formication [Recovered/Resolved]
  - Limb injury [Not Recovered/Not Resolved]
  - Dysphonia [Not Recovered/Not Resolved]
  - Rheumatoid arthritis [Not Recovered/Not Resolved]
  - Aphthous ulcer [Recovering/Resolving]
  - Glomerular filtration rate decreased [Unknown]
  - Infusion related reaction [Unknown]
  - H1N1 influenza [Recovering/Resolving]
  - Vulvovaginal mycotic infection [Unknown]
  - Cough [Unknown]
  - Viral upper respiratory tract infection [Recovered/Resolved]
  - Immunosuppression [Unknown]
  - Oral candidiasis [Unknown]
  - Gastrointestinal infection [Unknown]
  - Malaise [Unknown]
  - Weight increased [Not Recovered/Not Resolved]
  - Colitis [Recovering/Resolving]

NARRATIVE: CASE EVENT DATE: 20140827
